FAERS Safety Report 22345966 (Version 1)
Quarter: 2023Q2

REPORT INFORMATION
  Report Type: Spontaneous
  Country: US (occurrence: US)
  Receive Date: 20230519
  Receipt Date: 20230519
  Transmission Date: 20230722
  Serious: Yes (Hospitalization, Other)
  Sender: FDA-Public Use
  Company Number: US-FreseniusKabi-FK202306553

PATIENT
  Age: 90 Year
  Sex: Female

DRUGS (5)
  1. PROTAMINE SULFATE [Suspect]
     Active Substance: PROTAMINE SULFATE
     Indication: Haemostasis
     Dosage: 50 MG OVER 10 MIN.
  2. ESMOLOL [Suspect]
     Active Substance: ESMOLOL HYDROCHLORIDE
     Indication: Cardiac ventricular disorder
     Dosage: BOLUS
  3. ESMOLOL [Suspect]
     Active Substance: ESMOLOL HYDROCHLORIDE
     Dosage: 50?75 MICROGRAM/KG/MINUTE
  4. NOREPINEPHRINE [Concomitant]
     Active Substance: NOREPINEPHRINE
     Indication: Cardiac ventricular disorder
  5. PHENYLEPHRINE [Concomitant]
     Active Substance: PHENYLEPHRINE HYDROCHLORIDE
     Indication: Cardiac ventricular disorder
     Dosage: (0.4?0.5MCG/KG/MIN)

REACTIONS (3)
  - Cardiac ventricular disorder [Recovering/Resolving]
  - Sinus bradycardia [Recovering/Resolving]
  - Bundle branch block left [Recovering/Resolving]
